FAERS Safety Report 15486525 (Version 1)
Quarter: 2018Q4

REPORT INFORMATION
  Report Type: Spontaneous
  Country: GB (occurrence: GB)
  Receive Date: 20181011
  Receipt Date: 20181011
  Transmission Date: 20190205
  Serious: Yes (Other)
  Sender: FDA-Public Use
  Company Number: GB-SUN PHARMACEUTICAL INDUSTRIES LTD-2018RR-187212

PATIENT
  Age: 19 Year
  Sex: Male
  Weight: 64.41 kg

DRUGS (1)
  1. CLARITHROMYCIN. [Suspect]
     Active Substance: CLARITHROMYCIN
     Indication: UPPER RESPIRATORY TRACT INFECTION
     Dosage: 500MG TWICE A DAY ()
     Route: 048
     Dates: start: 20180906

REACTIONS (2)
  - Palpitations [Recovered/Resolved]
  - Panic attack [Recovered/Resolved]
